FAERS Safety Report 4329379-6 (Version None)
Quarter: 2004Q1

REPORT INFORMATION
  Report Type: 
  Country: None (occurrence: None)
  Receive Date: 20040331
  Receipt Date: 20040331
  Transmission Date: 20041129
  Serious: Yes (Other)
  Sender: FDA-Public Use
  Company Number: None

PATIENT
  Age: 78 Year
  Sex: Female
  Weight: 64.8644 kg

DRUGS (6)
  1. BUPIVACAINE [Suspect]
     Indication: PAIN MANAGEMENT
     Dosage: 2 ML/HR WITH/CC Q 45 MIN
     Dates: start: 20030825, end: 20030902
  2. DEMEROL [Suspect]
     Dosage: OVER 8 DAYS 400 CC TOTAL
     Dates: start: 20030825, end: 20030902
  3. REGULAR INSULIN [Concomitant]
  4. LOVENOX [Concomitant]
  5. VICODIN [Concomitant]
  6. VIOXX [Concomitant]

REACTIONS (2)
  - JAUNDICE [None]
  - MEDICAL DEVICE COMPLICATION [None]
